FAERS Safety Report 7861984-2 (Version None)
Quarter: 2011Q4

REPORT INFORMATION
  Report Type: 
  Country: None (occurrence: None)
  Receive Date: 20111027
  Receipt Date: 20101122
  Transmission Date: 20120403
  Serious: No
  Sender: FDA-Public Use
  Company Number: US-AMGEN-USASP2010006044

PATIENT
  Age: 53 Year
  Sex: Female
  Weight: 69.388 kg

DRUGS (13)
  1. TYLENOL W/ CODEINE NO. 3 [Concomitant]
  2. INDOMETHACIN [Concomitant]
     Dosage: 25 MG, UNK
  3. ACYCLOVIR [Concomitant]
     Dosage: 200 MG, UNK
  4. PRILOSEC [Concomitant]
     Dosage: 10 MG, UNK
  5. PREMARIN [Concomitant]
     Dosage: 0.625 MG, UNK
  6. POTASSIUM [Concomitant]
     Dosage: 75 MG, UNK
  7. FLEXERIL [Concomitant]
     Dosage: 10 MG, UNK
  8. LOVASTATIN [Concomitant]
     Dosage: 10 MG, UNK
  9. VITAMIN C                          /00008001/ [Concomitant]
     Dosage: 100 MG, UNK
  10. CALCIUM +D [Concomitant]
  11. ENBREL [Suspect]
     Indication: PRODUCT USED FOR UNKNOWN INDICATION
     Dosage: 50 MG, UNK
  12. METAMUCIL                          /00029101/ [Concomitant]
  13. VITAMIN B6 [Concomitant]
     Dosage: 100 MG, UNK

REACTIONS (2)
  - INJECTION SITE HAEMORRHAGE [None]
  - INJECTION SITE HAEMATOMA [None]
